FAERS Safety Report 11030012 (Version 1)
Quarter: 2015Q2

REPORT INFORMATION
  Report Type: Spontaneous
  Country: US (occurrence: US)
  Receive Date: 20150415
  Receipt Date: 20150415
  Transmission Date: 20150821
  Serious: No
  Sender: FDA-Public Use
  Company Number: US-BIOGENIDEC-2015BI043772

PATIENT
  Age: 51 Year
  Sex: Female

DRUGS (8)
  1. OXYBUTYNIN [Concomitant]
     Active Substance: OXYBUTYNIN
  2. DIFLUNISAL. [Concomitant]
     Active Substance: DIFLUNISAL
  3. AMPYRA [Concomitant]
     Active Substance: DALFAMPRIDINE
  4. TECFIDERA [Suspect]
     Active Substance: DIMETHYL FUMARATE
     Indication: MULTIPLE SCLEROSIS
     Route: 048
     Dates: start: 20130606, end: 20150402
  5. BACLOFEN. [Concomitant]
     Active Substance: BACLOFEN
  6. IRON [Concomitant]
     Active Substance: IRON
  7. VESICARE [Concomitant]
     Active Substance: SOLIFENACIN SUCCINATE
  8. NAPROXEN. [Concomitant]
     Active Substance: NAPROXEN

REACTIONS (1)
  - Drug ineffective [Unknown]

NARRATIVE: CASE EVENT DATE: 20150402
